FAERS Safety Report 5747214-6 (Version None)
Quarter: 2008Q2

REPORT INFORMATION
  Report Type: 
  Country: None (occurrence: None)
  Receive Date: 20080520
  Receipt Date: 20080509
  Transmission Date: 20081010
  Serious: Yes (Hospitalization, Other)
  Sender: FDA-Public Use
  Company Number: 2008BI012147

PATIENT
  Sex: Female
  Weight: 53.5244 kg

DRUGS (5)
  1. AVONEX [Suspect]
     Indication: MULTIPLE SCLEROSIS
     Dosage: 30 UG;QW;IM
     Route: 030
  2. LOPRESSOR [Concomitant]
  3. NORVASC [Concomitant]
  4. HYDROCHLOROTHIAZIDE [Concomitant]
  5. CATHETER [Concomitant]

REACTIONS (12)
  - DENTAL CARIES [None]
  - DEPRESSION [None]
  - GAIT DISTURBANCE [None]
  - GASTRIC ULCER [None]
  - INTERVERTEBRAL DISC PROTRUSION [None]
  - MALIGNANT MELANOMA [None]
  - NO THERAPEUTIC RESPONSE [None]
  - OESOPHAGITIS [None]
  - OXYGEN SATURATION DECREASED [None]
  - SECONDARY PROGRESSIVE MULTIPLE SCLEROSIS [None]
  - SKIN GRAFT [None]
  - WEIGHT DECREASED [None]
